FAERS Safety Report 4382529-8 (Version None)
Quarter: 2004Q2

REPORT INFORMATION
  Report Type: 
  Country: None (occurrence: None)
  Receive Date: 20040617
  Receipt Date: 20040607
  Transmission Date: 20050107
  Serious: Yes (Disabling, Other)
  Sender: FDA-Public Use
  Company Number: 2004038262

PATIENT
  Sex: Female

DRUGS (16)
  1. PHENYTOIN SODIUM [Suspect]
     Indication: EPILEPSY
     Dosage: 250 MG (50 MG, DAILY), ORAL
     Route: 048
     Dates: start: 20030501, end: 20040501
  2. HEPARIN-FRACTION, CALCIUM SALT (HEPARIN-FRACTION,  CALCIUM SALT) [Concomitant]
  3. LEVETIRACETAM [Concomitant]
  4. CLONAZEPAM [Concomitant]
  5. DEXAMETHASONE PHOSPHATE (DEXAMETHASONE PHOSPHATE) [Concomitant]
  6. SUCRALFATE [Concomitant]
  7. BROMAZEPAM (BROMAZEPAM) [Concomitant]
  8. HALOPERIDOL [Concomitant]
  9. MORPHINE [Concomitant]
  10. SODIUM PICOSULFATE (SODIUM PICOSULFATE) [Concomitant]
  11. METOCLOPRAMIDE HYDROCHLORIDE [Concomitant]
  12. PARACETAMOL (PARACETAMOL) [Concomitant]
  13. ESOMEPRAZOLE (ESOMEPRAZOLE) [Concomitant]
  14. RISPERDAL [Concomitant]
  15. ZOLPIDEM (ZOLPIDEM) [Concomitant]
  16. FLURAZEPAM HYDROCHLORIDE (FLURAZEPAM HYDROCHLORIDE) [Concomitant]

REACTIONS (5)
  - AGITATION [None]
  - FATIGUE [None]
  - GENERAL PHYSICAL HEALTH DETERIORATION [None]
  - HEPATIC TRAUMA [None]
  - HEPATITIS [None]
